FAERS Safety Report 13155546 (Version 1)
Quarter: 2017Q1

REPORT INFORMATION
  Report Type: Spontaneous
  Country: SI (occurrence: SI)
  Receive Date: 20170126
  Receipt Date: 20170126
  Transmission Date: 20170428
  Serious: Yes (Other)
  Sender: FDA-Public Use
  Company Number: SI-TEVA-730329ISR

PATIENT
  Age: 69 Year
  Sex: Female

DRUGS (1)
  1. BOPACATIN 10 MG/ML [Suspect]
     Active Substance: CARBOPLATIN
     Indication: OVARIAN CANCER RECURRENT
     Route: 042
     Dates: start: 20161227, end: 20161227

REACTIONS (6)
  - Chest pain [None]
  - Erythema [None]
  - Infusion related reaction [Recovered/Resolved]
  - Dyspnoea [None]
  - Oxygen saturation decreased [None]
  - Chest discomfort [None]

NARRATIVE: CASE EVENT DATE: 20161227
